FAERS Safety Report 7941944-3 (Version None)
Quarter: 2011Q4

REPORT INFORMATION
  Report Type: 
  Country: None (occurrence: None)
  Receive Date: 20111122
  Receipt Date: 20111111
  Transmission Date: 20120403
  Serious: Yes (Other)
  Sender: FDA-Public Use
  Company Number: IMP_05455_2011

PATIENT
  Age: 59 Year
  Sex: Female

DRUGS (5)
  1. PREDNISONE TAB [Concomitant]
  2. CHLOROQUINE PHOSPHATE [Suspect]
     Indication: CUTANEOUS LUPUS ERYTHEMATOSUS
     Dosage: (250 MG, FREQUENCY UNKNOWN), (250 MG BID)
  3. CHLOROQUINE PHOSPHATE [Suspect]
     Indication: PANNICULITIS
     Dosage: (250 MG, FREQUENCY UNKNOWN), (250 MG BID)
  4. CHLOROQUINE PHOSPHATE [Suspect]
     Indication: CUTANEOUS LUPUS ERYTHEMATOSUS
     Dosage: (250 MG, FREQUENCY UNKNOWN), (250 MG BID)
  5. CHLOROQUINE PHOSPHATE [Suspect]
     Indication: PANNICULITIS
     Dosage: (250 MG, FREQUENCY UNKNOWN), (250 MG BID)

REACTIONS (6)
  - BLOOD LACTATE DEHYDROGENASE INCREASED [None]
  - TOXICITY TO VARIOUS AGENTS [None]
  - MUSCULAR WEAKNESS [None]
  - BLOOD CREATINE PHOSPHOKINASE INCREASED [None]
  - MYOPATHY [None]
  - MUSCLE ATROPHY [None]
